FAERS Safety Report 8299431-1 (Version None)
Quarter: 2012Q2

REPORT INFORMATION
  Report Type: 
  Country: None (occurrence: None)
  Receive Date: 20120419
  Receipt Date: 20120410
  Transmission Date: 20120825
  Serious: Yes (Other)
  Sender: FDA-Public Use
  Company Number: DE-PFIZER INC-2012095172

PATIENT
  Sex: Male

DRUGS (2)
  1. RAMIPRIL [Suspect]
     Dosage: 10 MG, UNK
     Route: 048
  2. RAMIPRIL [Suspect]
     Dosage: UNK
     Route: 048
     Dates: start: 20100320

REACTIONS (2)
  - PARADOXICAL DRUG REACTION [None]
  - BLOOD PRESSURE INCREASED [None]
